FAERS Safety Report 6343395-4 (Version None)
Quarter: 2009Q3

REPORT INFORMATION
  Report Type: 
  Country: None (occurrence: None)
  Receive Date: 20090908
  Receipt Date: 20090902
  Transmission Date: 20100115
  Serious: Yes (Death, Other)
  Sender: FDA-Public Use
  Company Number: PHHY2009DE37323

PATIENT
  Sex: Female

DRUGS (1)
  1. LOPRESSOR [Suspect]

REACTIONS (7)
  - BRADYCARDIA [None]
  - COMA [None]
  - DRUG LEVEL INCREASED [None]
  - HYPOTENSION [None]
  - MULTIPLE INJURIES [None]
  - SPINAL HAEMATOMA [None]
  - VAGINAL HAEMORRHAGE [None]
